FAERS Safety Report 24568555 (Version 4)
Quarter: 2024Q4

REPORT INFORMATION
  Report Type: Spontaneous
  Country: US (occurrence: US)
  Receive Date: 20241031
  Receipt Date: 20241227
  Transmission Date: 20250115
  Serious: No
  Sender: BIOVITRUM
  Company Number: US-BIOVITRUM-2024-US-013986

PATIENT
  Age: 67 Year
  Sex: Male

DRUGS (10)
  1. VONJO [Suspect]
     Active Substance: PACRITINIB
     Indication: Myelofibrosis
     Dosage: TWICE DAILY
     Route: 048
     Dates: start: 20241013
  2. ALBUTEROL SULFATE [Concomitant]
     Active Substance: ALBUTEROL SULFATE
     Indication: Product used for unknown indication
  3. HARITAKI [Concomitant]
     Indication: Product used for unknown indication
  4. HYDROXYZINE [Concomitant]
     Active Substance: HYDROXYZINE HYDROCHLORIDE
     Indication: Product used for unknown indication
  5. M ORINGA [Concomitant]
     Indication: Product used for unknown indication
  6. MUCINEX [Concomitant]
     Active Substance: GUAIFENESIN
     Indication: Product used for unknown indication
  7. NYSTATIN [Concomitant]
     Active Substance: NYSTATIN
     Indication: Product used for unknown indication
  8. SERTRALINE [Concomitant]
     Active Substance: SERTRALINE HYDROCHLORIDE
     Indication: Product used for unknown indication
  9. SHILAJIT [Concomitant]
     Active Substance: FULVIC ACID
     Indication: Product used for unknown indication
  10. SEA MOSS [Concomitant]
     Indication: Product used for unknown indication

REACTIONS (6)
  - Dyspnoea [Unknown]
  - Influenza like illness [Unknown]
  - Chest discomfort [Unknown]
  - Anxiety [Unknown]
  - Constipation [Unknown]
  - Rhinorrhoea [Not Recovered/Not Resolved]
